FAERS Safety Report 8866132 (Version 1)
Quarter: 2012Q4

REPORT INFORMATION
  Report Type: 
  Country: IT (occurrence: IT)
  Receive Date: 20121025
  Receipt Date: 20121025
  Transmission Date: 20130627
  Serious: Yes (Hospitalization)
  Sender: FDA-Public Use
  Company Number: IT-MYLANLABS-2012S1021500

PATIENT
  Age: 79 Year
  Sex: Female

DRUGS (1)
  1. LANSOPRAZOLE [Suspect]
     Indication: ABDOMINAL PAIN UPPER
     Route: 048
     Dates: start: 20120718, end: 20120718

REACTIONS (5)
  - Erythema [Recovering/Resolving]
  - Eyelid oedema [Recovering/Resolving]
  - Face oedema [Recovering/Resolving]
  - Hypotension [Recovering/Resolving]
  - Pruritus [Recovering/Resolving]
